FAERS Safety Report 9548165 (Version 1)
Quarter: 2013Q3

REPORT INFORMATION
  Report Type: Spontaneous
  Country: FR (occurrence: None)
  Receive Date: 20130920
  Receipt Date: 20130920
  Transmission Date: 20140515
  Serious: Yes (Hospitalization)
  Sender: FDA-Public Use
  Company Number: 1891709

PATIENT
  Age: 80 Year
  Sex: Female

DRUGS (2)
  1. CARBOPLATIN [Suspect]
     Indication: OVARIAN CANCER
     Dosage: [1 DAY]
     Route: 041
     Dates: start: 20120410, end: 20120410
  2. TEXOTERE [Concomitant]

REACTIONS (5)
  - Pruritus [None]
  - Oxygen saturation decreased [None]
  - Flushing [None]
  - Blood pressure increased [None]
  - Infusion related reaction [None]
